FAERS Safety Report 6415063-1 (Version None)
Quarter: 2009Q4

REPORT INFORMATION
  Report Type: 
  Country: None (occurrence: None)
  Receive Date: 20091021
  Receipt Date: 20091006
  Transmission Date: 20100525
  Serious: Yes (Hospitalization)
  Sender: FDA-Public Use
  Company Number: POMP-1000221

PATIENT
  Age: 6 Week
  Sex: Female
  Weight: 3.6 kg

DRUGS (4)
  1. MYOZYME [Suspect]
     Indication: GLYCOGEN STORAGE DISEASE TYPE II
     Dosage: 20 MG/KG, Q2W, INTRAVENOUS
     Route: 042
     Dates: start: 20080519
  2. METHOTREXATE [Concomitant]
  3. IMMUNE GLOBULIN (IMMUNOGLOBULIN) [Concomitant]
  4. RITUXIMAB (RITUXIMAB) [Concomitant]

REACTIONS (3)
  - DIARRHOEA [None]
  - OXYGEN CONSUMPTION INCREASED [None]
  - VOMITING [None]
